FAERS Safety Report 6633062-1 (Version None)
Quarter: 2010Q1

REPORT INFORMATION
  Report Type: 
  Country: None (occurrence: None)
  Receive Date: 20100312
  Receipt Date: 20100301
  Transmission Date: 20100710
  Serious: Yes (Other)
  Sender: FDA-Public Use
  Company Number: PHEH2007US13325

PATIENT
  Sex: Female
  Weight: 72.562 kg

DRUGS (26)
  1. ZOMETA [Suspect]
     Dosage: UNK
     Dates: start: 20060101
  2. AREDIA [Suspect]
     Dosage: 90 MG, QW3
     Dates: start: 20000912, end: 20060101
  3. HERCEPTIN [Concomitant]
  4. AROMASIN [Concomitant]
  5. CEFZIL [Concomitant]
  6. LISINOPRIL [Concomitant]
     Dosage: 10 MG, QD
  7. LORAZEPAM [Concomitant]
     Dosage: 5 MG, PRN
  8. ZOCOR [Concomitant]
     Dosage: 40 MG, QD
  9. COZAAR [Concomitant]
     Dosage: 25 MG, UNK
  10. CARVEDILOL [Concomitant]
     Dosage: 3.125 MG, UNK
  11. FUROSEMIDE [Concomitant]
     Dosage: 20 MG, UNK
  12. AMOXICILLIN [Concomitant]
     Dosage: 500 MG, UNK
  13. METRONIDAZOLE [Concomitant]
     Dosage: 500 MG, UNK
  14. PENICILLIN VK [Concomitant]
     Dosage: 500 MG, UNK
     Dates: end: 20070529
  15. FLAGYL [Concomitant]
     Dosage: 500 MG QD
     Dates: start: 20061220, end: 20070529
  16. DOXYCYCLINE [Concomitant]
     Dosage: UNK
     Dates: start: 20070529
  17. PERIDEX [Concomitant]
     Dosage: QID
  18. XELODA [Concomitant]
     Dosage: 500 MG, UNK
  19. ADRIAMYCIN PFS [Concomitant]
     Dosage: UNK
  20. CYTOXAN [Concomitant]
     Dosage: UNK
  21. TAXOL [Concomitant]
     Dosage: UNK
  22. VALTREX [Concomitant]
     Dosage: UNK
     Route: 048
  23. ALOXI [Concomitant]
     Dosage: 0.25 MG, UNK
  24. DECADRON #1 [Concomitant]
     Dosage: 10 MG, UNK
  25. GEMZAR [Concomitant]
     Dosage: 1400 MG, UNK
  26. ABRAXANE [Concomitant]
     Dosage: 177 MG, UNK

REACTIONS (26)
  - ABSCESS RUPTURE [None]
  - ANXIETY [None]
  - BONE DISORDER [None]
  - CHONDROMALACIA [None]
  - DEFORMITY [None]
  - DENTAL FISTULA [None]
  - DISABILITY [None]
  - EMOTIONAL DISTRESS [None]
  - HERPES ZOSTER [None]
  - HYPOAESTHESIA FACIAL [None]
  - INFECTION [None]
  - INJURY [None]
  - LEFT VENTRICULAR DYSFUNCTION [None]
  - METASTASES TO LIVER [None]
  - METASTASES TO SPINE [None]
  - MOUTH HAEMORRHAGE [None]
  - ORAL DISORDER [None]
  - OSTEONECROSIS [None]
  - OVERDOSE [None]
  - PAIN [None]
  - PAIN IN JAW [None]
  - PURULENT DISCHARGE [None]
  - SWELLING FACE [None]
  - SYNOVIAL DISORDER [None]
  - TOOTH ABSCESS [None]
  - TOOTH EXTRACTION [None]
